FAERS Safety Report 14039108 (Version 1)
Quarter: 2017Q4

REPORT INFORMATION
  Report Type: Spontaneous
  Country: US (occurrence: US)
  Receive Date: 20171004
  Receipt Date: 20171004
  Transmission Date: 20180321
  Serious: No
  Sender: FDA-Public Use
  Company Number: US-INDIVIOR LIMITED-INDV-098313-2017

PATIENT
  Age: 23 Year
  Sex: Female

DRUGS (1)
  1. SUBOXONE [Suspect]
     Active Substance: BUPRENORPHINE HYDROCHLORIDE\NALOXONE HYDROCHLORIDE
     Indication: SUBSTANCE USE
     Dosage: HALF OF A QUARTER OF THE FILM
     Route: 042

REACTIONS (7)
  - Fear [Unknown]
  - Substance abuse [Unknown]
  - Abnormal behaviour [Unknown]
  - Irritability [Unknown]
  - Anxiety [Unknown]
  - Product preparation error [Unknown]
  - Intentional product use issue [Unknown]
